FAERS Safety Report 17736160 (Version 1)
Quarter: 2020Q2

REPORT INFORMATION
  Report Type: Spontaneous
  Country: US (occurrence: US)
  Receive Date: 20200501
  Receipt Date: 20200501
  Transmission Date: 20200714
  Serious: No
  Sender: FDA-Public Use
  Company Number: US-CADILA HEALTHCARE LIMITED-US-ZYDUS-047191

PATIENT
  Age: 55 Year
  Sex: Female

DRUGS (9)
  1. CHOLESTYRAMINE. [Suspect]
     Active Substance: CHOLESTYRAMINE
     Indication: BILE ACID MALABSORPTION
     Dosage: 4 GRAM,FREQUENCY :TWICE DAILY
     Route: 048
     Dates: start: 202001, end: 202001
  2. MAGNESIUM [Concomitant]
     Active Substance: MAGNESIUM
     Indication: ANXIETY
     Dosage: FREQUENCY :UNKNOWN
     Route: 065
  3. CHOLESTYRAMINE. [Suspect]
     Active Substance: CHOLESTYRAMINE
     Indication: BILE ACID MALABSORPTION
     Dosage: 4 GRAM,FREQUENCY :TWICE DAILY
     Route: 048
     Dates: start: 201911, end: 201911
  4. BISOPROLOL [Concomitant]
     Active Substance: BISOPROLOL
     Indication: HYPERTENSION
     Dosage: FREQUENCY :UNKNOWN
     Route: 065
  5. PLAVIX [Concomitant]
     Active Substance: CLOPIDOGREL BISULFATE
     Indication: PRODUCT USED FOR UNKNOWN INDICATION
     Dosage: FREQUENCY :UNKNOWN
     Route: 065
  6. LOSARTAN. [Concomitant]
     Active Substance: LOSARTAN
     Indication: HYPERTENSION
     Dosage: FREQUENCY :UNKNOWN
     Route: 065
  7. ASPIRIN. [Concomitant]
     Active Substance: ASPIRIN
     Indication: PRODUCT USED FOR UNKNOWN INDICATION
     Dosage: FREQUENCY :UNKNOWN
     Route: 065
  8. ZOLOFT [Concomitant]
     Active Substance: SERTRALINE HYDROCHLORIDE
     Indication: DEPRESSION
     Dosage: FREQUENCY :UNKNOWN
     Route: 065
  9. OMEPRAZOLE. [Concomitant]
     Active Substance: OMEPRAZOLE
     Indication: PRODUCT USED FOR UNKNOWN INDICATION
     Dosage: FREQUENCY :UNKNOWN
     Route: 065

REACTIONS (4)
  - Product physical consistency issue [Recovered/Resolved]
  - Product use in unapproved indication [Recovered/Resolved]
  - Suffocation feeling [Recovered/Resolved]
  - Product residue present [Recovered/Resolved]

NARRATIVE: CASE EVENT DATE: 201911
